FAERS Safety Report 18975145 (Version 16)
Quarter: 2024Q1

REPORT INFORMATION
  Report Type: Report from Study
  Country: CO (occurrence: CO)
  Receive Date: 20210305
  Receipt Date: 20240208
  Transmission Date: 20240410
  Serious: Yes (Hospitalization, Other)
  Sender: FDA-Public Use
  Company Number: CO-TAKEDA-CO202034229

PATIENT
  Age: 44 Year
  Sex: Female
  Weight: 59 kg

DRUGS (7)
  1. ICATIBANT [Suspect]
     Active Substance: ICATIBANT ACETATE
     Indication: Hereditary angioedema
     Dosage: 1 DOSAGE FORM
     Route: 058
     Dates: start: 20190524
  2. ICATIBANT [Suspect]
     Active Substance: ICATIBANT ACETATE
     Indication: Hereditary angioedema
     Dosage: 1 DOSAGE FORM
     Route: 058
     Dates: start: 20190524
  3. ICATIBANT [Suspect]
     Active Substance: ICATIBANT ACETATE
     Dosage: 30 MILLIGRAM
     Route: 058
  4. ICATIBANT [Suspect]
     Active Substance: ICATIBANT ACETATE
     Dosage: 30 MILLIGRAM
     Route: 058
  5. ICATIBANT [Suspect]
     Active Substance: ICATIBANT ACETATE
     Dosage: 1 DOSAGE FORM
     Route: 058
  6. ICATIBANT [Suspect]
     Active Substance: ICATIBANT ACETATE
     Dosage: 1 DOSAGE FORM
     Route: 058
  7. DANAZOL [Concomitant]
     Active Substance: DANAZOL
     Dosage: 200 MILLIGRAM, QOD
     Route: 065

REACTIONS (11)
  - Carpal tunnel syndrome [Unknown]
  - Lower limb fracture [Not Recovered/Not Resolved]
  - Road traffic accident [Recovering/Resolving]
  - COVID-19 [Not Recovered/Not Resolved]
  - Genital pain [Recovered/Resolved]
  - Weight increased [Unknown]
  - Blood pressure decreased [Recovering/Resolving]
  - Mobility decreased [Not Recovered/Not Resolved]
  - Weight decreased [Unknown]
  - Pain in extremity [Recovering/Resolving]
  - Body height increased [Unknown]

NARRATIVE: CASE EVENT DATE: 20210220
